FAERS Safety Report 9286072 (Version 1)
Quarter: 2013Q2

REPORT INFORMATION
  Report Type: Spontaneous
  Country: US (occurrence: US)
  Receive Date: 20130513
  Receipt Date: 20130513
  Transmission Date: 20140414
  Serious: Yes (Other)
  Sender: FDA-Public Use
  Company Number: US-TEVA-403821USA

PATIENT
  Age: 61 Year
  Sex: Female

DRUGS (2)
  1. PACLITAXEL [Suspect]
     Indication: BREAST CANCER METASTATIC
     Route: 065
  2. BEVACIZUMAB [Concomitant]
     Indication: BREAST CANCER METASTATIC
     Route: 065

REACTIONS (2)
  - Cystoid macular oedema [Recovering/Resolving]
  - Neuropathy peripheral [Unknown]
